FAERS Safety Report 5506328-6 (Version None)
Quarter: 2007Q4

REPORT INFORMATION
  Report Type: 
  Country: None (occurrence: None)
  Receive Date: 20071105
  Receipt Date: 20071023
  Transmission Date: 20080405
  Serious: Yes (Death)
  Sender: FDA-Public Use
  Company Number: ES-BAYER-200716271GDS

PATIENT
  Age: 74 Year
  Sex: Male

DRUGS (12)
  1. ADIRO 100 MG [Suspect]
     Indication: MYOCARDIAL ISCHAEMIA
     Dosage: UNIT DOSE: 100 MG
     Route: 048
     Dates: start: 20070101, end: 20070510
  2. SERTRALINE [Suspect]
     Indication: DEPRESSION
     Route: 048
     Dates: end: 20070510
  3. SIMVASTATIN [Suspect]
     Indication: HYPERLIPIDAEMIA
     Route: 048
     Dates: end: 20070510
  4. OMEPRAZOLE [Suspect]
     Indication: GASTRITIS PROPHYLAXIS
     Route: 048
     Dates: end: 20070510
  5. SINTROM 4 MG 20 TABLETS [Suspect]
     Indication: THROMBOSIS PROPHYLAXIS
     Route: 048
     Dates: start: 20060101, end: 20070510
  6. TRANGOREX 200 MG 30 TABLETS [Suspect]
     Indication: ATRIAL FIBRILLATION
     Dosage: UNIT DOSE: 200 MG
     Route: 048
     Dates: start: 20060101, end: 20070510
  7. INSULINA NOVOMIX [Concomitant]
     Indication: DRUG USE FOR UNKNOWN INDICATION
     Route: 058
  8. INSULINA NOVORAPID [Concomitant]
     Indication: DRUG USE FOR UNKNOWN INDICATION
     Route: 058
  9. TORSEMIDE [Concomitant]
     Indication: DRUG USE FOR UNKNOWN INDICATION
     Route: 065
  10. ENALAPRIL MALEATE [Concomitant]
     Indication: DRUG USE FOR UNKNOWN INDICATION
     Route: 065
  11. UNIKET [Concomitant]
     Indication: DRUG USE FOR UNKNOWN INDICATION
     Route: 065
  12. LORAZEPAM [Concomitant]
     Indication: DRUG USE FOR UNKNOWN INDICATION
     Route: 048

REACTIONS (2)
  - ACUTE PULMONARY OEDEMA [None]
  - GASTROINTESTINAL HAEMORRHAGE [None]
